FAERS Safety Report 9059262 (Version 1)
Quarter: 2013Q1

REPORT INFORMATION
  Report Type: Spontaneous
  Country: DE (occurrence: DE)
  Receive Date: 20130211
  Receipt Date: 20130211
  Transmission Date: 20140127
  Serious: Yes (Other)
  Sender: FDA-Public Use
  Company Number: DE-ELI_LILLY_AND_COMPANY-DE201212006500

PATIENT
  Sex: Male

DRUGS (7)
  1. BYETTA [Suspect]
     Indication: DIABETES MELLITUS
     Dosage: 10 UG, UNK
     Route: 058
     Dates: start: 20120830
  2. L-THYROXIN [Concomitant]
     Dosage: 100 UG, UNK
  3. SIMVASTATIN [Concomitant]
     Dosage: 40 MG, UNKNOWN
  4. OMEPRAZOL [Concomitant]
  5. BISOPROLOL [Concomitant]
     Dosage: 5 MG, UNK
  6. INSULIN [Concomitant]
     Dosage: UNK, EACH EVENING
  7. METFORMIN [Concomitant]

REACTIONS (9)
  - Blood pressure increased [Not Recovered/Not Resolved]
  - Skin burning sensation [Not Recovered/Not Resolved]
  - Pruritus [Not Recovered/Not Resolved]
  - Diarrhoea [Not Recovered/Not Resolved]
  - Blood cholesterol increased [Not Recovered/Not Resolved]
  - Blood triglycerides increased [Not Recovered/Not Resolved]
  - Mean cell haemoglobin concentration increased [Not Recovered/Not Resolved]
  - Paraesthesia [Not Recovered/Not Resolved]
  - Glycosylated haemoglobin increased [Not Recovered/Not Resolved]
